FAERS Safety Report 16693131 (Version 1)
Quarter: 2019Q4

REPORT INFORMATION
  Report Type: Spontaneous
  Country: US (occurrence: US)
  Receive Date: 20190811
  Receipt Date: 20190811
  Transmission Date: 20200122
  Serious: Yes (Other)
  Sender: FDA-Public Use
  Company Number: None

PATIENT
  Age: 50 Year
  Sex: Female
  Weight: 62.1 kg

DRUGS (7)
  1. VITAMIND D3 [Concomitant]
  2. SIMPONI [Concomitant]
     Active Substance: GOLIMUMAB
  3. SULFASALAZINE (AZULFINDINE) [Concomitant]
  4. CHOLECALCIFEROL [Concomitant]
     Active Substance: CHOLECALCIFEROL
  5. COSENTYX [Suspect]
     Active Substance: SECUKINUMAB
     Indication: ANKYLOSING SPONDYLITIS
     Dates: start: 20170301, end: 20180401
  6. (VITAMIN D) [Concomitant]
  7. PREMARIN VAGINAL [Concomitant]
     Active Substance: ESTROGENS, CONJUGATED

REACTIONS (1)
  - Crohn^s disease [None]

NARRATIVE: CASE EVENT DATE: 20180208
